FAERS Safety Report 16328031 (Version 1)
Quarter: 2019Q2

REPORT INFORMATION
  Report Type: Spontaneous
  Country: US (occurrence: US)
  Receive Date: 20190518
  Receipt Date: 20190518
  Transmission Date: 20190711
  Serious: No
  Sender: FDA-Public Use
  Company Number: US-UNITED THERAPEUTICS-UNT-2019-008649

PATIENT
  Sex: Female
  Weight: 54.42 kg

DRUGS (1)
  1. REMODULIN [Suspect]
     Active Substance: TREPROSTINIL
     Indication: PULMONARY ARTERIAL HYPERTENSION
     Dosage: 0.068 ?G/KG, CONTINUING
     Route: 041
     Dates: start: 20140227

REACTIONS (6)
  - Nausea [Unknown]
  - Device issue [Unknown]
  - Dizziness [Unknown]
  - Dyspnoea [Unknown]
  - Hyperhidrosis [Unknown]
  - Headache [Unknown]
